FAERS Safety Report 9274969 (Version 4)
Quarter: 2014Q1

REPORT INFORMATION
  Report Type: Spontaneous
  Country: US (occurrence: US)
  Receive Date: 20130507
  Receipt Date: 20140310
  Transmission Date: 20141002
  Serious: Yes (Death, Other)
  Sender: FDA-Public Use
  Company Number: US-SANOFI-AVENTIS-2013SA045150

PATIENT
  Age: 48 Year
  Sex: Male
  Weight: 113.39 kg

DRUGS (1)
  1. LOVENOX [Suspect]
     Indication: THROMBOSIS
     Route: 051
     Dates: start: 20121101, end: 20130401

REACTIONS (14)
  - Spinal cord neoplasm [Not Recovered/Not Resolved]
  - Lumbar puncture [Unknown]
  - Thrombosis [Unknown]
  - Tenderness [Unknown]
  - Pulmonary thrombosis [Unknown]
  - Hodgkin^s disease [Unknown]
  - Paralysis [Fatal]
  - Balance disorder [Fatal]
  - Abasia [Fatal]
  - Paraesthesia [Fatal]
  - Urinary incontinence [Fatal]
  - Functional gastrointestinal disorder [Fatal]
  - Adverse event [Unknown]
  - Contusion [Not Recovered/Not Resolved]
